FAERS Safety Report 18667544 (Version 1)
Quarter: 2020Q4

REPORT INFORMATION
  Report Type: Report from Study
  Country: PL (occurrence: PL)
  Receive Date: 20201228
  Receipt Date: 20201228
  Transmission Date: 20210114
  Serious: Yes (Hospitalization, Other)
  Sender: FDA-Public Use
  Company Number: PL-JNJFOC-20200411792

PATIENT
  Age: 63 Year
  Sex: Male
  Weight: 106 kg

DRUGS (9)
  1. ENCORTON [Concomitant]
     Active Substance: PREDNISONE
     Route: 048
     Dates: start: 20181110
  2. NEUROVIT [Concomitant]
     Indication: VITAMIN SUPPLEMENTATION
     Route: 048
     Dates: start: 20190917
  3. BICARDEF [Concomitant]
     Indication: HYPERTENSION
     Route: 048
     Dates: start: 20170411
  4. PRIMACOR [Concomitant]
     Active Substance: MILRINONE LACTATE
     Indication: HYPERTENSION
     Route: 048
     Dates: start: 201904
  5. ASPARGIN [Concomitant]
     Active Substance: ASPARTIC ACID
     Indication: MINERAL SUPPLEMENTATION
     Route: 048
     Dates: start: 20200320
  6. AZATHIOPRINE. [Concomitant]
     Active Substance: AZATHIOPRINE
     Indication: SYSTEMIC LUPUS ERYTHEMATOSUS
     Route: 048
     Dates: start: 201902
  7. VITAMIN D3 [Concomitant]
     Active Substance: CHOLECALCIFEROL
     Indication: PROPHYLAXIS
     Dosage: 2000 UNIT
     Route: 048
     Dates: start: 20171218
  8. VASTAN [Concomitant]
     Indication: PROPHYLAXIS
     Route: 048
     Dates: start: 20170411
  9. USTEKINUMAB [Suspect]
     Active Substance: USTEKINUMAB
     Indication: SYSTEMIC LUPUS ERYTHEMATOSUS
     Route: 058
     Dates: start: 20190607, end: 20200115

REACTIONS (1)
  - Gastric cancer [Not Recovered/Not Resolved]

NARRATIVE: CASE EVENT DATE: 20200324
